FAERS Safety Report 7569868-4 (Version None)
Quarter: 2011Q2

REPORT INFORMATION
  Report Type: 
  Country: None (occurrence: None)
  Receive Date: 20110622
  Receipt Date: 20110622
  Transmission Date: 20111010
  Serious: Yes (Hospitalization)
  Sender: FDA-Public Use
  Company Number: None

PATIENT
  Age: 53 Year
  Sex: Male
  Weight: 85.2 kg

DRUGS (7)
  1. MS CONTIN [Concomitant]
  2. OXYCODONE HCL [Concomitant]
  3. COLACE [Concomitant]
  4. COMPAZINE [Concomitant]
  5. RAD001 EVEROLIMUS [Suspect]
     Indication: COLORECTAL CANCER
     Dosage: 10 MG QD
     Dates: start: 20110513, end: 20110527
  6. ATIVAN [Concomitant]
  7. AV-951 [Suspect]
     Indication: COLORECTAL CANCER
     Dosage: 1 MG QD
     Dates: start: 20110513, end: 20110617

REACTIONS (2)
  - ABDOMINAL PAIN [None]
  - CONSTIPATION [None]
